FAERS Safety Report 17204961 (Version 1)
Quarter: 2019Q4

REPORT INFORMATION
  Report Type: Spontaneous
  Country: JP (occurrence: JP)
  Receive Date: 20191227
  Receipt Date: 20191227
  Transmission Date: 20200122
  Serious: Yes (Other)
  Sender: FDA-Public Use
  Company Number: JP-AMGEN-JPNSP2019215403

PATIENT

DRUGS (2)
  1. FILGRASTIM BS [FILGRASTIM BIOSIMILAR 1] [Concomitant]
     Indication: PRODUCT USED FOR UNKNOWN INDICATION
     Dosage: UNK
     Route: 058
  2. G-LASTA [Suspect]
     Active Substance: PEGFILGRASTIM
     Indication: COLONY STIMULATING FACTOR THERAPY
     Dosage: 3.6 MG
     Route: 058

REACTIONS (2)
  - Colony stimulating factor therapy [Unknown]
  - Neutropenia [Recovered/Resolved]
